FAERS Safety Report 25353092 (Version 1)
Quarter: 2025Q2

REPORT INFORMATION
  Report Type: Spontaneous
  Country: US (occurrence: None)
  Receive Date: 20250523
  Receipt Date: 20250523
  Transmission Date: 20250717
  Serious: No
  Sender: INCYTE
  Company Number: US-INCYTE CORPORATION-2025IN005327

PATIENT
  Age: 80 Year
  Weight: 89.4 kg

DRUGS (1)
  1. JAKAFI [Suspect]
     Active Substance: RUXOLITINIB
     Indication: Pulmonary mass
     Dosage: 10 MILLIGRAM, BID

REACTIONS (2)
  - Illness [Unknown]
  - Off label use [Unknown]
